FAERS Safety Report 4649037-8 (Version None)
Quarter: 2005Q2

REPORT INFORMATION
  Report Type: 
  Country: None (occurrence: None)
  Receive Date: 20050429
  Receipt Date: 20050422
  Transmission Date: 20051028
  Serious: Yes (Hospitalization)
  Sender: FDA-Public Use
  Company Number: US-ROCHE-402988

PATIENT
  Sex: Female

DRUGS (3)
  1. ACCUTANE [Suspect]
     Indication: DRUG USE FOR UNKNOWN INDICATION
     Route: 065
     Dates: start: 20041102, end: 20041215
  2. ACCUTANE [Suspect]
     Route: 065
     Dates: start: 20050207, end: 20050317
  3. ORTHO EVRA [Concomitant]
     Indication: CONTRACEPTION

REACTIONS (3)
  - BLOOD TRIGLYCERIDES INCREASED [None]
  - COLLAPSE OF LUNG [None]
  - PREGNANCY [None]
